FAERS Safety Report 8161395-9 (Version None)
Quarter: 2012Q1

REPORT INFORMATION
  Report Type: 
  Country: None (occurrence: None)
  Receive Date: 20120224
  Receipt Date: 20120213
  Transmission Date: 20120608
  Serious: No
  Sender: FDA-Public Use
  Company Number: US-ALLERGAN-1116917US

PATIENT
  Sex: Female

DRUGS (3)
  1. LASTACAFT [Suspect]
     Indication: EYE INJURY
     Dosage: 2 GTT, BID
     Route: 047
     Dates: start: 20111222
  2. ARTIFICIAL TEARS                   /00445101/ [Concomitant]
     Indication: PRODUCT USED FOR UNKNOWN INDICATION
  3. LASTACAFT [Suspect]
     Indication: SEASONAL ALLERGY
     Dosage: 2 GTT, BID
     Route: 047
     Dates: start: 20111208, end: 20111222

REACTIONS (3)
  - SCLERAL HYPERAEMIA [None]
  - EYE PRURITUS [None]
  - ERYTHEMA OF EYELID [None]
